FAERS Safety Report 24924924 (Version 2)
Quarter: 2025Q1

REPORT INFORMATION
  Report Type: Spontaneous
  Country: HU (occurrence: HU)
  Receive Date: 20250204
  Receipt Date: 20250313
  Transmission Date: 20250409
  Serious: Yes (Other)
  Sender: EXELIXIS
  Company Number: HU-EXELIXIS-CABO-24077292

PATIENT
  Sex: Female

DRUGS (1)
  1. COMETRIQ [Suspect]
     Active Substance: CABOZANTINIB S-MALATE
     Indication: Medullary thyroid cancer
     Dosage: 140 MG, QD
     Dates: start: 20190723, end: 20191020

REACTIONS (8)
  - Hepatotoxicity [Unknown]
  - Blood lactate dehydrogenase increased [Unknown]
  - Epistaxis [Unknown]
  - Rash maculo-papular [Unknown]
  - Hair colour changes [Unknown]
  - Headache [Unknown]
  - Palmar-plantar erythrodysaesthesia syndrome [Unknown]
  - Vomiting [Unknown]
